FAERS Safety Report 8524627-0 (Version None)
Quarter: 2012Q3

REPORT INFORMATION
  Report Type: 
  Country: None (occurrence: None)
  Receive Date: 20120720
  Receipt Date: 20120716
  Transmission Date: 20120928
  Serious: Yes (Death, Hospitalization, Other)
  Sender: FDA-Public Use
  Company Number: AU-GENZYME-FLUD-1001508

PATIENT
  Sex: Male
  Weight: 88 kg

DRUGS (22)
  1. HUMALOG [Concomitant]
     Indication: PRODUCT USED FOR UNKNOWN INDICATION
     Dosage: 62 U, UNK
     Route: 065
     Dates: start: 20040101
  2. FLUDARA [Suspect]
     Indication: CHRONIC LYMPHOCYTIC LEUKAEMIA
     Dosage: 40 MG, QD
     Route: 048
     Dates: start: 20110413
  3. HYDROCHLOROTHIAZIDE [Concomitant]
     Indication: PRODUCT USED FOR UNKNOWN INDICATION
     Dosage: 1.25 MG, UNK
     Route: 065
     Dates: start: 20120101, end: 20120628
  4. METFORMIN HYDROCHLORIDE [Concomitant]
     Indication: PRODUCT USED FOR UNKNOWN INDICATION
     Dosage: 2 G, UNK
     Route: 065
     Dates: start: 20040101
  5. ALBUTEROL SULATE [Concomitant]
     Dosage: 30 MG, UNK
     Route: 065
     Dates: start: 20120702
  6. FUROSEMIDE [Concomitant]
     Indication: PRODUCT USED FOR UNKNOWN INDICATION
     Dosage: UNK
     Route: 065
     Dates: start: 20120630, end: 20120702
  7. IPRATROPIUM BROMIDE [Concomitant]
     Dosage: 2 MG, UNK
     Route: 065
     Dates: start: 20120702
  8. COLOXYL [Concomitant]
     Indication: PRODUCT USED FOR UNKNOWN INDICATION
     Dosage: 4 TABLETS, UNK
     Route: 065
     Dates: start: 20120702
  9. MOVIPREP [Concomitant]
     Indication: PRODUCT USED FOR UNKNOWN INDICATION
     Dosage: 4 SACHETS
     Route: 065
     Dates: start: 20120702
  10. MAGMIN [Concomitant]
     Indication: PRODUCT USED FOR UNKNOWN INDICATION
     Dosage: 4 TABLETS, UNK
     Route: 065
     Dates: start: 20120630
  11. CYCLOPHOSPHAMIDE [Suspect]
     Indication: CHRONIC LYMPHOCYTIC LEUKAEMIA
     Dosage: 300 MG, QD
     Route: 048
     Dates: start: 20110413
  12. ATENOLOL [Concomitant]
     Indication: PRODUCT USED FOR UNKNOWN INDICATION
     Dosage: 25 MG, UNK
     Route: 065
     Dates: start: 20110101
  13. ACETAMINOPHEN [Concomitant]
     Indication: PRODUCT USED FOR UNKNOWN INDICATION
     Dosage: 1 G, PRN
     Route: 065
     Dates: start: 20110101
  14. ATORVASTATIN [Concomitant]
     Indication: PRODUCT USED FOR UNKNOWN INDICATION
     Dosage: 80 MG, UNK
     Route: 065
     Dates: start: 20101101
  15. ASPIRIN [Concomitant]
     Indication: PRODUCT USED FOR UNKNOWN INDICATION
     Dosage: 100 MG, UNK
     Route: 065
     Dates: start: 20100901
  16. IPRATROPIUM BROMIDE [Concomitant]
     Indication: PRODUCT USED FOR UNKNOWN INDICATION
     Dosage: 500 MCG, UNK
     Route: 065
     Dates: start: 20120629, end: 20120629
  17. RITUXIMAB [Concomitant]
     Indication: CHRONIC LYMPHOCYTIC LEUKAEMIA
     Dosage: 1050 MG, PRN
     Route: 042
     Dates: start: 20110412
  18. SODIUM CHLORIDE [Concomitant]
     Indication: PRODUCT USED FOR UNKNOWN INDICATION
     Dosage: UNK
     Route: 065
     Dates: start: 20120629
  19. PERINDOPRIL ERBUMINE [Concomitant]
     Indication: PRODUCT USED FOR UNKNOWN INDICATION
     Dosage: 4 MG, UNK
     Route: 065
     Dates: start: 20100901, end: 20120628
  20. CEFTRIAXONE [Concomitant]
     Indication: PRODUCT USED FOR UNKNOWN INDICATION
     Dosage: 1 G, UNK
     Route: 065
     Dates: start: 20120630
  21. ALBUTEROL SULATE [Concomitant]
     Indication: PRODUCT USED FOR UNKNOWN INDICATION
     Dosage: 5 MG, UNK
     Route: 065
     Dates: start: 20120629, end: 20120629
  22. GENTAMICIN [Concomitant]
     Indication: PRODUCT USED FOR UNKNOWN INDICATION
     Dosage: 350 MG, UNK
     Route: 065
     Dates: start: 20120630, end: 20120630

REACTIONS (17)
  - CHRONIC OBSTRUCTIVE PULMONARY DISEASE [None]
  - FLUID OVERLOAD [None]
  - FEMUR FRACTURE [None]
  - BONE LESION [None]
  - WEIGHT DECREASED [None]
  - DECREASED APPETITE [None]
  - OSTEOARTHRITIS [None]
  - LUNG SQUAMOUS CELL CARCINOMA METASTATIC [None]
  - LUNG NEOPLASM [None]
  - ARTHRALGIA [None]
  - DYSPNOEA [None]
  - SQUAMOUS CELL CARCINOMA [None]
  - OXYGEN SATURATION DECREASED [None]
  - PAIN [None]
  - MASS [None]
  - ABDOMINAL HERNIA [None]
  - SOFT TISSUE MASS [None]
